FAERS Safety Report 5082647-5 (Version None)
Quarter: 2006Q3

REPORT INFORMATION
  Report Type: 
  Country: None (occurrence: None)
  Receive Date: 20060814
  Receipt Date: 20060731
  Transmission Date: 20061208
  Serious: Yes (Death, Hospitalization)
  Sender: FDA-Public Use
  Company Number: 14487

PATIENT
  Age: 60 Year
  Sex: Male
  Weight: 84 kg

DRUGS (6)
  1. FLUOROURACIL [Suspect]
     Indication: BILIARY NEOPLASM
     Dosage: 375 MG/M2 DAILY IV
     Route: 042
     Dates: start: 20060320, end: 20060515
  2. FLUOROURACIL [Suspect]
  3. LEUCOVORIN CALCIUM [Suspect]
     Indication: BILIARY NEOPLASM
     Dosage: 25 MG/M2 DAILY IV
     Route: 042
     Dates: start: 20060320, end: 20060515
  4. TROPISETRON [Concomitant]
  5. NOVAMINSULFON [Concomitant]
  6. MOXIFLOXACIN HCL [Concomitant]

REACTIONS (13)
  - ASCITES [None]
  - BRONCHITIS [None]
  - C-REACTIVE PROTEIN INCREASED [None]
  - CHOLANGITIS [None]
  - CHOLESTASIS [None]
  - DYSPNOEA [None]
  - IMMUNODEFICIENCY [None]
  - LEUKOCYTOSIS [None]
  - LUNG INFILTRATION [None]
  - MULTI-ORGAN FAILURE [None]
  - PNEUMONIA [None]
  - PULMONARY CONGESTION [None]
  - RENAL FAILURE [None]
